FAERS Safety Report 8160681-6 (Version None)
Quarter: 2012Q1

REPORT INFORMATION
  Report Type: 
  Country: None (occurrence: None)
  Receive Date: 20120223
  Receipt Date: 20120222
  Transmission Date: 20120608
  Serious: No
  Sender: FDA-Public Use
  Company Number: US-PFIZER INC-2012047387

PATIENT
  Sex: Male
  Weight: 80.726 kg

DRUGS (6)
  1. VALIUM [Concomitant]
     Indication: EMPHYSEMA
     Dosage: UNK
  2. HYDROMORPHONE [Concomitant]
     Indication: MUSCULOSKELETAL PAIN
  3. ALBUTEROL [Concomitant]
     Indication: EMPHYSEMA
     Dosage: UNK
  4. HYDROMORPHONE [Concomitant]
     Indication: BACK PAIN
     Dosage: UNK
  5. CHANTIX [Suspect]
     Indication: SMOKING CESSATION THERAPY
     Dosage: 0.5 MG, 1X/DAY
     Route: 048
     Dates: start: 20110101, end: 20110101
  6. HYDROMORPHONE [Concomitant]
     Indication: NECK PAIN

REACTIONS (1)
  - STRESS [None]
